FAERS Safety Report 18776182 (Version 1)
Quarter: 2021Q1

REPORT INFORMATION
  Report Type: Spontaneous
  Country: US (occurrence: US)
  Receive Date: 20210122
  Receipt Date: 20210122
  Transmission Date: 20210419
  Serious: Yes (Other)
  Sender: FDA-Public Use
  Company Number: US-MYLANLABS-2020M1055436

PATIENT
  Sex: Female
  Weight: 57 kg

DRUGS (1)
  1. GLATIRAMER ACETATE INJECTION [Suspect]
     Active Substance: GLATIRAMER ACETATE
     Indication: MULTIPLE SCLEROSIS
     Dosage: 40 MILLIGRAM, 3XW
     Route: 058

REACTIONS (9)
  - Product use issue [Unknown]
  - Injection site mass [Unknown]
  - Liquid product physical issue [Unknown]
  - Injection site swelling [Unknown]
  - Injection site discolouration [Unknown]
  - Syringe issue [Unknown]
  - Multiple sclerosis [Unknown]
  - Drug ineffective [Unknown]
  - Needle issue [Unknown]
